FAERS Safety Report 22198449 (Version 1)
Quarter: 2023Q2

REPORT INFORMATION
  Report Type: Spontaneous
  Country: US (occurrence: None)
  Receive Date: 20230411
  Receipt Date: 20230411
  Transmission Date: 20230722
  Serious: No
  Sender: FDA-Public Use
  Company Number: None

PATIENT
  Age: 19 Year
  Sex: Female
  Weight: 80.37 kg

DRUGS (2)
  1. ESCITALOPRAM [Suspect]
     Active Substance: ESCITALOPRAM OXALATE
     Indication: Depression
     Dosage: FREQUENCY : DAILY;?
     Route: 048
     Dates: start: 20220419
  2. ESCITALOPRAM [Suspect]
     Active Substance: ESCITALOPRAM OXALATE
     Indication: Anxiety

REACTIONS (3)
  - Fatigue [None]
  - Apathy [None]
  - Feeling abnormal [None]

NARRATIVE: CASE EVENT DATE: 20220426
